FAERS Safety Report 8591381-6 (Version None)
Quarter: 2012Q3

REPORT INFORMATION
  Report Type: 
  Country: None (occurrence: None)
  Receive Date: 20120803
  Receipt Date: 20120803
  Transmission Date: 20120928
  Serious: Yes (Hospitalization)
  Sender: FDA-Public Use
  Company Number: None

PATIENT
  Age: 85 Year
  Sex: Female
  Weight: 42.2 kg

DRUGS (22)
  1. LIDODERM [Concomitant]
  2. LOPRESSOR [Concomitant]
  3. OMEPRAZOLE [Concomitant]
  4. SPIRONOLACTONE [Concomitant]
  5. SENOKOT [Concomitant]
  6. DIGOXIN [Concomitant]
  7. LASIX [Concomitant]
  8. ASPIRIN [Suspect]
     Indication: MITRAL VALVE DISEASE
     Dosage: 81MG DAILY PO CHRONIC
     Route: 048
  9. UNKNOWN ABS FOR FUNGAL INFCTN [Suspect]
     Indication: FUNGAL INFECTION
     Dosage: 4 MG QHS PO RECENT
     Route: 048
  10. SYNTHROID [Concomitant]
  11. GLYCERIN SUPP [Concomitant]
  12. DULCOLAX [Concomitant]
  13. MIRALAX [Concomitant]
  14. DEMECLOCYCLINE HCL [Concomitant]
  15. KLOR-CON [Concomitant]
  16. ENULOSE [Concomitant]
  17. WARFARIN SODIUM [Suspect]
     Indication: MITRAL VALVE DISEASE
     Dosage: 4 MG QHS PO CHRONIC
     Route: 048
  18. ATROPINE [Concomitant]
  19. LORAZEPAM [Concomitant]
  20. HYDROCODONE BITARTRATE AND ACETAMINOPHEN [Concomitant]
  21. SPIRIVA [Concomitant]
  22. FENTANYL [Concomitant]

REACTIONS (10)
  - HYPONATRAEMIA [None]
  - ECCHYMOSIS [None]
  - INTERNATIONAL NORMALISED RATIO INCREASED [None]
  - SKIN INJURY [None]
  - COAGULOPATHY [None]
  - SKIN HAEMORRHAGE [None]
  - FUNGAL INFECTION [None]
  - URINARY TRACT INFECTION [None]
  - PROTHROMBIN TIME PROLONGED [None]
  - OEDEMA PERIPHERAL [None]
